FAERS Safety Report 6089224-8 (Version None)
Quarter: 2009Q1

REPORT INFORMATION
  Report Type: 
  Country: None (occurrence: None)
  Receive Date: 20090224
  Receipt Date: 20090217
  Transmission Date: 20090719
  Serious: Yes (Other)
  Sender: FDA-Public Use
  Company Number: BR-AVENTIS-200815520EU

PATIENT
  Age: 54 Year
  Sex: Male

DRUGS (5)
  1. CLEXANE [Suspect]
     Indication: DEEP VEIN THROMBOSIS
     Route: 058
     Dates: start: 20080924, end: 20080928
  2. TYLEX                              /00547501/ [Concomitant]
     Indication: ANALGESIA
     Route: 048
     Dates: start: 20080924, end: 20080930
  3. MAREVAN [Concomitant]
     Indication: ANTICOAGULANT THERAPY
     Route: 048
     Dates: start: 20080924, end: 20080930
  4. FRONTAL [Concomitant]
     Indication: ANXIETY
     Route: 048
     Dates: start: 20080924, end: 20080930
  5. PONDERA [Concomitant]
     Indication: ANTIDEPRESSANT THERAPY
     Route: 048
     Dates: start: 20080924, end: 20080930

REACTIONS (3)
  - ALANINE AMINOTRANSFERASE INCREASED [None]
  - ASPARTATE AMINOTRANSFERASE INCREASED [None]
  - LIVER INJURY [None]
